FAERS Safety Report 9311670 (Version 1)
Quarter: 2013Q2

REPORT INFORMATION
  Report Type: Spontaneous
  Country: AR (occurrence: AR)
  Receive Date: 20130528
  Receipt Date: 20130528
  Transmission Date: 20140414
  Serious: Yes (Hospitalization, Other)
  Sender: FDA-Public Use
  Company Number: AR-ROCHE-GNE324196

PATIENT
  Age: 69 Year
  Sex: Female

DRUGS (1)
  1. LUCENTIS [Suspect]
     Indication: MACULOPATHY
     Dosage: ONE AMPULE PER MONTH
     Route: 050
     Dates: start: 201008, end: 201108

REACTIONS (4)
  - Meniscus injury [Recovered/Resolved]
  - Syncope [Recovering/Resolving]
  - Memory impairment [Recovering/Resolving]
  - Fall [Unknown]
